FAERS Safety Report 10230575 (Version 2)
Quarter: 2014Q2

REPORT INFORMATION
  Report Type: Spontaneous
  Country: US (occurrence: US)
  Receive Date: 20140611
  Receipt Date: 20140611
  Transmission Date: 20141212
  Serious: No
  Sender: FDA-Public Use
  Company Number: US-INCYTE CORPORATION-2014IN000951

PATIENT
  Age: 72 Year
  Sex: Male
  Weight: 67.12 kg

DRUGS (9)
  1. JAKAFI [Suspect]
     Dosage: 10 MG, BID
     Route: 048
     Dates: start: 20140401
  2. SIMVASTATIN [Concomitant]
  3. ATENOLOL [Concomitant]
  4. VENTOLIN                           /00139501/ [Concomitant]
  5. ASMANEX [Concomitant]
  6. LEVOTHYROXINE [Concomitant]
  7. ALLOPURINOL [Concomitant]
  8. ECOTRIN [Concomitant]
  9. ALLEVIATE [Concomitant]

REACTIONS (6)
  - Paraesthesia [Unknown]
  - Musculoskeletal pain [Unknown]
  - Arthralgia [Unknown]
  - Pneumonia [Unknown]
  - Neuropathy peripheral [Unknown]
  - Transfusion [None]
